FAERS Safety Report 7911591-8 (Version None)
Quarter: 2011Q4

REPORT INFORMATION
  Report Type: 
  Country: None (occurrence: None)
  Receive Date: 20111028
  Receipt Date: 20101210
  Transmission Date: 20120403
  Serious: Yes (Other)
  Sender: FDA-Public Use
  Company Number: PHHY2010US60633

PATIENT
  Age: 75 Year
  Sex: Female

DRUGS (5)
  1. TAMOXIFEN CITRATE [Concomitant]
  2. PREMARIX [Concomitant]
  3. ARIMIDEX [Concomitant]
  4. FEMARA [Concomitant]
  5. ESTRADIOL [Suspect]
     Dosage: TRANSDERMAL
     Route: 062

REACTIONS (1)
  - BREAST CANCER [None]
